FAERS Safety Report 5689194-8 (Version None)
Quarter: 2008Q1

REPORT INFORMATION
  Report Type: 
  Country: None (occurrence: None)
  Receive Date: 20080331
  Receipt Date: 20080326
  Transmission Date: 20080703
  Serious: Yes (Other)
  Sender: FDA-Public Use
  Company Number: JP-ASTRAZENECA-2008AP02147

PATIENT
  Age: 73 Year
  Sex: Male

DRUGS (2)
  1. OMEPRAL TABLETS [Suspect]
     Route: 048
  2. LIPITOR [Suspect]
     Dosage: UNKNOWN DOSE
     Route: 048
     Dates: end: 20080312

REACTIONS (1)
  - LIVER DISORDER [None]
